FAERS Safety Report 9521824 (Version 2)
Quarter: 2013Q3

REPORT INFORMATION
  Report Type: Spontaneous
  Country: ZA (occurrence: ZA)
  Receive Date: 20130913
  Receipt Date: 20130913
  Transmission Date: 20140515
  Serious: Yes (Hospitalization, Other)
  Sender: FDA-Public Use
  Company Number: PHHY2013ZA097689

PATIENT
  Age: 57 Year
  Sex: Female

DRUGS (3)
  1. VOLTAREN [Suspect]
     Indication: FIBROMYALGIA
     Dosage: 75 MG,
     Route: 030
     Dates: end: 20130327
  2. PANAMOR [Suspect]
     Route: 030
  3. VALIUM [Concomitant]
     Indication: PAIN

REACTIONS (4)
  - Injection site mass [Unknown]
  - Injection site pain [Not Recovered/Not Resolved]
  - Spinal column injury [Unknown]
  - Musculoskeletal discomfort [Unknown]
